FAERS Safety Report 4312858-5 (Version None)
Quarter: 2004Q1

REPORT INFORMATION
  Report Type: 
  Country: None (occurrence: None)
  Receive Date: 20040304
  Receipt Date: 20040220
  Transmission Date: 20041129
  Serious: Yes (Hospitalization, Other)
  Sender: FDA-Public Use
  Company Number: HQWYE199920FEB04

PATIENT
  Age: 70 Year
  Sex: Male

DRUGS (5)
  1. CONCOR (BISOPROLOL, TABLET) [Suspect]
     Indication: HYPERTENSION
     Dosage: 5 MG 1X PER 1 DAY ORAL
     Route: 048
     Dates: start: 20010101, end: 20031125
  2. DIGITOXIN TAB [Suspect]
     Indication: ATRIAL FIBRILLATION
     Dosage: 0.07 MG 1X PER 1 DAY ORAL
     Route: 048
     Dates: start: 20000101, end: 20031125
  3. AMARYL [Concomitant]
  4. RAMIPRIL [Concomitant]
  5. ISCOVER (CLOPIDOGREL SULFATE) [Concomitant]

REACTIONS (6)
  - ARRHYTHMIA [None]
  - ASTHENIA [None]
  - ATRIAL FIBRILLATION [None]
  - BRADYCARDIA [None]
  - DRUG INTERACTION [None]
  - MALAISE [None]
